FAERS Safety Report 4491128-9 (Version None)
Quarter: 2004Q3

REPORT INFORMATION
  Report Type: 
  Country: None (occurrence: None)
  Receive Date: 20040927
  Receipt Date: 20040728
  Transmission Date: 20050211
  Serious: No
  Sender: FDA-Public Use
  Company Number: USA040773983

PATIENT
  Age: 29 Year
  Sex: Male
  Weight: 155 kg

DRUGS (2)
  1. STRATTERA [Suspect]
     Indication: ATTENTION DEFICIT/HYPERACTIVITY DISORDER
     Dosage: 10 MG DAY
     Dates: start: 20040701
  2. WELLBUTRIN [Concomitant]

REACTIONS (3)
  - DECREASED APPETITE [None]
  - HEART RATE INCREASED [None]
  - THIRST [None]
